FAERS Safety Report 6379357-0 (Version None)
Quarter: 2009Q3

REPORT INFORMATION
  Report Type: 
  Country: None (occurrence: None)
  Receive Date: 20090923
  Receipt Date: 20090923
  Transmission Date: 20100115
  Serious: Yes (Hospitalization)
  Sender: FDA-Public Use
  Company Number: None

PATIENT
  Age: 54 Year

DRUGS (17)
  1. INSULIN ASPART [Suspect]
     Indication: TYPE 1 DIABETES MELLITUS
     Dosage: SSI, 18UNITS
     Route: 058
     Dates: start: 20081110, end: 20081111
  2. NPH ILETIN II [Suspect]
     Dosage: 28 UNITS PM; 42 UNITS AM
     Route: 058
  3. ASPIRIN [Concomitant]
  4. CALCIUM [Concomitant]
  5. DOCUSATE [Concomitant]
  6. FLUTICASONE INH [Concomitant]
  7. BENZONATATE [Concomitant]
  8. HEPARIN [Concomitant]
  9. HYDROCHLOROTHIAZIDE [Concomitant]
  10. LANTUS [Concomitant]
  11. IRBESARTAN [Concomitant]
  12. FUROSEMINE [Concomitant]
  13. METOPROLOL [Concomitant]
  14. PREDNISONE TAB [Concomitant]
  15. RANITIDINE [Concomitant]
  16. SENNA [Concomitant]
  17. TIOTROPIUM [Concomitant]

REACTIONS (5)
  - BLOOD GLUCOSE DECREASED [None]
  - BLOOD GLUCOSE INCREASED [None]
  - DIZZINESS [None]
  - HYPERHIDROSIS [None]
  - PARAESTHESIA ORAL [None]
